FAERS Safety Report 7626684 (Version 3)
Quarter: 2019Q3

REPORT INFORMATION
  Report Type: Spontaneous
  Country: US (occurrence: US)
  Receive Date: 20101013
  Receipt Date: 20190925
  Transmission Date: 20191005
  Serious: Yes (Life-Threatening, Other)
  Sender: FDA-Public Use
  Company Number: US-ASTRAZENECA-2009SE32806

PATIENT
  Age: 37 Year
  Sex: Male

DRUGS (8)
  1. TIXOCORTOL-21-PIVALATE [Suspect]
     Active Substance: TIXOCORTOL PIVALATE
     Indication: SKIN TEST
     Dosage: 1%
     Route: 061
  2. BUDESONIDE. [Suspect]
     Active Substance: BUDESONIDE
     Indication: ASTHMA
     Dosage: BUDESONIDE 0.01%
     Route: 061
  3. HYDROCORTISONE. [Suspect]
     Active Substance: HYDROCORTISONE
     Indication: SKIN TEST
     Dosage: 1%
     Route: 061
  4. BUDESONIDE/FORMOTEROL [Suspect]
     Active Substance: BUDESONIDE\FORMOTEROL
     Indication: SEASONAL ALLERGY
     Route: 055
  5. BUDESONIDE/FORMOTEROL [Suspect]
     Active Substance: BUDESONIDE\FORMOTEROL
     Indication: ASTHMA
     Route: 055
  6. ALBUTEROL. [Concomitant]
     Active Substance: ALBUTEROL
     Route: 055
  7. BUDESONIDE/FORMOTEROL [Suspect]
     Active Substance: BUDESONIDE\FORMOTEROL
     Indication: ALLERGY TEST
     Dosage: APPLICATION OF BUDESONIDE/FORMOTEROL WAS SPRAYED ONTO THE PATIENT^S ARM
     Route: 061
  8. BUDESONIDE. [Suspect]
     Active Substance: BUDESONIDE
     Indication: SEASONAL ALLERGY
     Dosage: BUDESONIDE 0.01%
     Route: 061

REACTIONS (3)
  - Anaphylactic reaction [Recovering/Resolving]
  - Skin test positive [Unknown]
  - Hypersensitivity [Unknown]
